FAERS Safety Report 15920217 (Version 2)
Quarter: 2019Q1

REPORT INFORMATION
  Report Type: Spontaneous
  Country: JP (occurrence: JP)
  Receive Date: 20190205
  Receipt Date: 20190214
  Transmission Date: 20190417
  Serious: Yes (Life-Threatening, Hospitalization, Other)
  Sender: FDA-Public Use
  Company Number: JP-MYLANLABS-2019M1010764

PATIENT
  Age: 62 Year
  Sex: Male
  Weight: 57 kg

DRUGS (8)
  1. REMIFENTANIL [Concomitant]
     Active Substance: REMIFENTANIL
     Indication: INDUCTION OF ANAESTHESIA
     Dosage: 0.2 MICROG/KG/MIN
     Route: 042
  2. REMIFENTANIL [Concomitant]
     Active Substance: REMIFENTANIL
     Dosage: 0.3MICROG/KG/MIN
     Route: 042
  3. DESFLURANE. [Concomitant]
     Active Substance: DESFLURANE
     Indication: INDUCTION OF ANAESTHESIA
     Route: 055
  4. SEVOFLURANE. [Concomitant]
     Active Substance: SEVOFLURANE
     Indication: INDUCTION OF ANAESTHESIA
     Dosage: UNK
     Route: 055
  5. ROCURONIUM [Suspect]
     Active Substance: ROCURONIUM BROMIDE
     Indication: MUSCLE RELAXANT THERAPY
     Dosage: 40MG
     Route: 042
  6. NICORANDIL [Concomitant]
     Active Substance: NICORANDIL
     Indication: INDUCTION OF ANAESTHESIA
     Dosage: 4 MILLIGRAM, 1HOUR
     Route: 065
  7. ROCURONIUM [Suspect]
     Active Substance: ROCURONIUM BROMIDE
     Dosage: 50MG
     Route: 042
  8. PROPOFOL. [Concomitant]
     Active Substance: PROPOFOL
     Indication: INDUCTION OF ANAESTHESIA
     Dosage: 60 MILLIGRAM
     Route: 042

REACTIONS (3)
  - Kounis syndrome [Recovered/Resolved]
  - Cardiac arrest [Recovering/Resolving]
  - Anaphylactic reaction [Recovered/Resolved]
